FAERS Safety Report 14308464 (Version 2)
Quarter: 2018Q3

REPORT INFORMATION
  Report Type: Spontaneous
  Country: DE (occurrence: DE)
  Receive Date: 20171220
  Receipt Date: 20180817
  Transmission Date: 20181010
  Serious: Yes (Hospitalization, Other)
  Sender: FDA-Public Use
  Company Number: DE-ELI_LILLY_AND_COMPANY-DE201710009269

PATIENT
  Age: 53 Year
  Sex: Female

DRUGS (6)
  1. ZYPADHERA [Suspect]
     Active Substance: OLANZAPINE PAMOATE
     Indication: SCHIZOPHRENIA
     Dosage: 405 MG, EVERY 3 WEEKS
     Route: 030
     Dates: start: 20150408
  2. VALPROAT [Concomitant]
     Active Substance: VALPROATE SODIUM
     Dosage: 600 MG, CYCLICAL
     Route: 065
  3. VALPROAT [Concomitant]
     Active Substance: VALPROATE SODIUM
     Indication: PRODUCT USED FOR UNKNOWN INDICATION
     Dosage: 300 MG, CYCLICAL
     Route: 065
  4. TAVOR (LORAZEPAM) [Concomitant]
     Active Substance: LORAZEPAM
     Indication: PRODUCT USED FOR UNKNOWN INDICATION
     Dosage: 0.5 MG, UNKNOWN
     Route: 065
  5. ZYPADHERA [Suspect]
     Active Substance: OLANZAPINE PAMOATE
     Indication: SCHIZOPHRENIA
     Dosage: 300 MG, 2/M (EVERY 14 DAYS)
     Route: 030
     Dates: start: 20150408
  6. CIATYL?Z                           /00876702/ [Concomitant]
     Active Substance: ZUCLOPENTHIXOL ACETATE
     Indication: PRODUCT USED FOR UNKNOWN INDICATION
     Dosage: 200 MG, 2/M (EVERY 14 DAYS)
     Route: 065
     Dates: start: 20170808

REACTIONS (21)
  - Sedation [Recovered/Resolved]
  - Confusional state [Not Recovered/Not Resolved]
  - Dysarthria [Unknown]
  - Cognitive disorder [Unknown]
  - Mean platelet volume increased [Unknown]
  - Antipsychotic drug level increased [Unknown]
  - Hallucination [Unknown]
  - Malaise [Unknown]
  - Delirium [Recovered/Resolved]
  - Post-injection delirium sedation syndrome [Recovered/Resolved]
  - Blood calcium increased [Unknown]
  - Heart rate increased [Unknown]
  - Blood pressure increased [Recovered/Resolved]
  - Agitation [Unknown]
  - Disorientation [Unknown]
  - C-reactive protein increased [Unknown]
  - Restlessness [Not Recovered/Not Resolved]
  - Overdose [Unknown]
  - Lividity [Unknown]
  - White blood cell count increased [Unknown]
  - Blood sodium decreased [Unknown]

NARRATIVE: CASE EVENT DATE: 20171018
